FAERS Safety Report 6993679-1 (Version None)
Quarter: 2010Q3

REPORT INFORMATION
  Report Type: 
  Country: None (occurrence: None)
  Receive Date: 20100917
  Receipt Date: 20070919
  Transmission Date: 20110219
  Serious: Yes (Other)
  Sender: FDA-Public Use
  Company Number: US-ASTRAZENECA-2006UW21164

PATIENT
  Age: 45 Year
  Sex: Female

DRUGS (7)
  1. SEROQUEL [Suspect]
     Indication: DEPRESSION
     Route: 048
     Dates: start: 20020101
  2. SEROQUEL [Suspect]
     Dosage: 100 MG - 500 MG
     Route: 048
     Dates: start: 20030508
  3. LIPITOR [Concomitant]
  4. ZOLOFT [Concomitant]
     Dosage: 50 MG - 100 MG
     Dates: start: 20030805
  5. KLONOPIN [Concomitant]
     Dates: start: 20030501
  6. TRILAFON [Concomitant]
     Dates: start: 20030501, end: 20030805
  7. GLUCOVANCE [Concomitant]
     Dosage: 1.25 / 250 TWO TIMES A DAY
     Route: 048
     Dates: start: 20030509

REACTIONS (7)
  - BLOOD CHOLESTEROL INCREASED [None]
  - DIABETES MELLITUS [None]
  - DIABETES MELLITUS INADEQUATE CONTROL [None]
  - DYSLIPIDAEMIA [None]
  - HYPERCHOLESTEROLAEMIA [None]
  - HYPERGLYCAEMIA [None]
  - TYPE 2 DIABETES MELLITUS [None]
